FAERS Safety Report 7556978-0 (Version None)
Quarter: 2011Q2

REPORT INFORMATION
  Report Type: 
  Country: None (occurrence: None)
  Receive Date: 20110620
  Receipt Date: 20110608
  Transmission Date: 20111010
  Serious: Yes (Other)
  Sender: FDA-Public Use
  Company Number: PHHY2011US42794

PATIENT
  Sex: Male

DRUGS (9)
  1. TRAMADOL HCL [Concomitant]
     Indication: PAIN
     Dosage: 50 MG, PRN
     Route: 048
  2. GLUCOSAMINE [Concomitant]
     Dosage: 1000 MG, QD
     Route: 048
  3. PHOSPHATIDYL [Concomitant]
     Dosage: 500 MG, QD
     Route: 048
  4. PROVIGIL [Concomitant]
     Indication: FATIGUE
     Dosage: 200 MG, BID
     Route: 048
  5. CIALIS [Concomitant]
     Dosage: UNK UKN, UNK
  6. LYRICA [Concomitant]
     Dosage: UNK UKN, UNK
  7. VITAMIN B-12 [Concomitant]
     Dosage: 500 MG, QD
  8. NEURONTIN [Concomitant]
     Indication: PAIN
     Dosage: 800 MG, BID
  9. GILENYA [Suspect]
     Indication: MULTIPLE SCLEROSIS
     Dosage: 0.5 MG, QD
     Route: 048
     Dates: start: 20110413

REACTIONS (2)
  - CONJUNCTIVAL HAEMORRHAGE [None]
  - OCULAR HYPERAEMIA [None]
